FAERS Safety Report 7620689-3 (Version None)
Quarter: 2011Q3

REPORT INFORMATION
  Report Type: 
  Country: None (occurrence: None)
  Receive Date: 20110719
  Receipt Date: 20110719
  Transmission Date: 20111222
  Serious: Yes (Other)
  Sender: FDA-Public Use
  Company Number: US-GLAXOSMITHKLINE-A0919222A

PATIENT
  Age: 50 Year
  Sex: Male

DRUGS (2)
  1. ASPIRIN [Concomitant]
  2. LOVAZA [Suspect]
     Indication: BLOOD TRIGLYCERIDES INCREASED
     Dosage: 2CAP TWICE PER DAY
     Route: 048
     Dates: start: 20100701

REACTIONS (3)
  - MALAISE [None]
  - GASTRIC DISORDER [None]
  - DYSPEPSIA [None]
